FAERS Safety Report 12523098 (Version 18)
Quarter: 2020Q3

REPORT INFORMATION
  Report Type: Report from Study
  Country: DE (occurrence: DE)
  Receive Date: 20160701
  Receipt Date: 20200813
  Transmission Date: 20201102
  Serious: Yes (Hospitalization, Other)
  Sender: FDA-Public Use
  Company Number: PHHY2016DE090677

PATIENT
  Sex: Female
  Weight: 65 kg

DRUGS (24)
  1. VOTRIENT [Suspect]
     Active Substance: PAZOPANIB HYDROCHLORIDE
     Dosage: 400 MG, QD
     Route: 048
     Dates: start: 20160716, end: 20161014
  2. VOTRIENT [Suspect]
     Active Substance: PAZOPANIB HYDROCHLORIDE
     Dosage: 400 MG, QD
     Route: 048
     Dates: start: 20170421, end: 20170713
  3. VOTRIENT [Suspect]
     Active Substance: PAZOPANIB HYDROCHLORIDE
     Dosage: 400 MG, QD
     Route: 048
     Dates: start: 20171020, end: 20180111
  4. VOTRIENT [Suspect]
     Active Substance: PAZOPANIB HYDROCHLORIDE
     Indication: METASTATIC RENAL CELL CARCINOMA
     Dosage: 400 MG, QD
     Route: 048
     Dates: start: 20160415, end: 20160602
  5. VOTRIENT [Suspect]
     Active Substance: PAZOPANIB HYDROCHLORIDE
     Dosage: 400 MG, QD
     Route: 048
     Dates: start: 20161015, end: 20170207
  6. VOTRIENT [Suspect]
     Active Substance: PAZOPANIB HYDROCHLORIDE
     Dosage: 400 MG, QD
     Route: 048
     Dates: start: 20180831
  7. HYDROCORTISONE. [Suspect]
     Active Substance: HYDROCORTISONE
     Dosage: 10 MG, TID
     Route: 048
     Dates: start: 20161129
  8. PIRACETAM ^RATIOPHARM^ [Suspect]
     Active Substance: PIRACETAM
     Indication: PRESBYACUSIS
     Dosage: 800 MG, QD
     Route: 048
     Dates: start: 2014
  9. NOVOTHYRAL [Concomitant]
     Active Substance: LEVOTHYROXINE SODIUM\LIOTHYRONINE SODIUM
     Indication: HYPOTHYROIDISM
     Dosage: 75 MG, QD
     Route: 048
     Dates: start: 20171013
  10. HYDROCORTISONE. [Suspect]
     Active Substance: HYDROCORTISONE
     Dosage: 10 MG, TID
     Route: 048
     Dates: start: 20160531
  11. ESIDREX [Suspect]
     Active Substance: HYDROCHLOROTHIAZIDE
     Indication: ESSENTIAL HYPERTENSION
     Dosage: 25 MG, QD
     Route: 048
     Dates: start: 20161109, end: 20170301
  12. VOTRIENT [Suspect]
     Active Substance: PAZOPANIB HYDROCHLORIDE
     Dosage: 600 MG, QD
     Route: 048
     Dates: start: 20160603, end: 20160715
  13. PIRACETAM ^RATIOPHARM^ [Suspect]
     Active Substance: PIRACETAM
     Dosage: 10 UNK, UNK
     Route: 048
     Dates: start: 20161129
  14. PROTHYRID [Concomitant]
     Active Substance: LEVOTHYROXINE SODIUM
     Indication: HYPOTHYROIDISM
     Dosage: 50 UG, QD
     Route: 048
     Dates: start: 1976
  15. PANTOZOL [Concomitant]
     Active Substance: PANTOPRAZOLE SODIUM
     Indication: PRODUCT USED FOR UNKNOWN INDICATION
     Dosage: 40 MG, QD
     Route: 048
     Dates: start: 201107
  16. HCT [Concomitant]
     Active Substance: HYDROCHLOROTHIAZIDE
     Indication: ESSENTIAL HYPERTENSION
     Dosage: 25 MG, QD
     Route: 048
     Dates: start: 20161109, end: 20161129
  17. VOTRIENT [Suspect]
     Active Substance: PAZOPANIB HYDROCHLORIDE
     Dosage: 400 MG, QD
     Route: 048
     Dates: start: 20170714, end: 20171019
  18. HYDROCORTISONE. [Suspect]
     Active Substance: HYDROCORTISONE
     Indication: ADRENAL INSUFFICIENCY
     Dosage: 10 MG, BID
     Route: 048
     Dates: start: 201107, end: 20160530
  19. MAGNESIUM VERLA [Concomitant]
     Active Substance: MAGNESIUM
     Indication: PROPHYLAXIS
     Dosage: 600 MG, QD
     Route: 048
     Dates: start: 20160815, end: 20161129
  20. VOTRIENT [Suspect]
     Active Substance: PAZOPANIB HYDROCHLORIDE
     Dosage: 400 MG, QD
     Route: 048
     Dates: start: 20170301, end: 20170420
  21. LERCANIDIPINE [Concomitant]
     Active Substance: LERCANIDIPINE
     Indication: ESSENTIAL HYPERTENSION
     Dosage: 5 MG, QD
     Route: 048
     Dates: start: 20160501, end: 20161129
  22. VOTRIENT [Suspect]
     Active Substance: PAZOPANIB HYDROCHLORIDE
     Dosage: 400 MG, QD
     Route: 048
     Dates: start: 20180112, end: 20180607
  23. VOTRIENT [Suspect]
     Active Substance: PAZOPANIB HYDROCHLORIDE
     Dosage: 400 MG, QD
     Route: 048
     Dates: start: 20180608, end: 20180830
  24. LERCANIDIPINE [Concomitant]
     Active Substance: LERCANIDIPINE
     Dosage: 10 MG, TID
     Route: 048
     Dates: start: 20161130

REACTIONS (9)
  - Hyponatraemia [Recovered/Resolved]
  - Transaminases increased [Recovered/Resolved]
  - Hyponatraemia [Recovered/Resolved]
  - Thrombocytopenia [Recovered/Resolved]
  - Adrenocortical insufficiency acute [Recovered/Resolved]
  - Hypertension [Not Recovered/Not Resolved]
  - Diarrhoea [Recovered/Resolved]
  - Alopecia [Not Recovered/Not Resolved]
  - Fatigue [Not Recovered/Not Resolved]

NARRATIVE: CASE EVENT DATE: 20160512
